FAERS Safety Report 11686331 (Version 2)
Quarter: 2015Q4

REPORT INFORMATION
  Report Type: Report from Study
  Country: US (occurrence: US)
  Receive Date: 20151030
  Receipt Date: 20151112
  Transmission Date: 20160304
  Serious: Yes (Death, Hospitalization, Other)
  Sender: FDA-Public Use
  Company Number: US-GILEAD-2015-0179322

PATIENT
  Age: 61 Year
  Sex: Female
  Weight: 62.59 kg

DRUGS (10)
  1. AMBRISENTAN [Suspect]
     Active Substance: AMBRISENTAN
     Indication: PORTOPULMONARY HYPERTENSION
  2. AMBRISENTAN [Suspect]
     Active Substance: AMBRISENTAN
     Indication: HEPATIC CIRRHOSIS
  3. AMBRISENTAN [Suspect]
     Active Substance: AMBRISENTAN
     Indication: METASTATIC NEOPLASM
  4. AMBRISENTAN [Suspect]
     Active Substance: AMBRISENTAN
     Indication: THROMBOCYTOPENIA
  5. AMBRISENTAN [Suspect]
     Active Substance: AMBRISENTAN
     Indication: ABDOMINAL INFECTION
  6. AMBRISENTAN [Suspect]
     Active Substance: AMBRISENTAN
     Indication: HEPATIC ENCEPHALOPATHY
  7. AMBRISENTAN [Suspect]
     Active Substance: AMBRISENTAN
     Indication: PULMONARY HYPERTENSION
     Dosage: 5 MG, QD
     Route: 065
     Dates: start: 20151015, end: 20151025
  8. AMBRISENTAN [Suspect]
     Active Substance: AMBRISENTAN
     Indication: FUNGAL INFECTION
  9. AMBRISENTAN [Suspect]
     Active Substance: AMBRISENTAN
     Indication: ASCITES
  10. AMBRISENTAN [Suspect]
     Active Substance: AMBRISENTAN
     Indication: HEPATITIS C

REACTIONS (4)
  - Hepatic encephalopathy [Unknown]
  - Septic shock [Fatal]
  - Pneumonia [Unknown]
  - Sepsis [Fatal]

NARRATIVE: CASE EVENT DATE: 20151026
